FAERS Safety Report 6746442-0 (Version None)
Quarter: 2010Q2

REPORT INFORMATION
  Report Type: 
  Country: None (occurrence: None)
  Receive Date: 20100528
  Receipt Date: 20100520
  Transmission Date: 20101027
  Serious: Yes (Disabling, Other)
  Sender: FDA-Public Use
  Company Number: US-BAYER-201015791BCC

PATIENT
  Age: 49 Year
  Sex: Male
  Weight: 82 kg

DRUGS (5)
  1. ASPIRIN [Suspect]
     Indication: PROPHYLAXIS
     Dosage: TOTAL DAILY DOSE: 81 MG  UNIT DOSE: 81 MG
     Route: 048
     Dates: start: 20070101
  2. BENICAR [Concomitant]
     Route: 065
  3. NORVASC [Concomitant]
     Route: 065
  4. FISH OIL [Concomitant]
     Route: 065
  5. CENTRUM SILVER [Concomitant]
     Route: 065

REACTIONS (4)
  - CONTUSION [None]
  - DEAFNESS [None]
  - DYSACUSIS [None]
  - TINNITUS [None]
